FAERS Safety Report 5082348-3 (Version None)
Quarter: 2006Q3

REPORT INFORMATION
  Report Type: 
  Country: None (occurrence: None)
  Receive Date: 20060817
  Receipt Date: 20060810
  Transmission Date: 20061208
  Serious: Yes (Hospitalization)
  Sender: FDA-Public Use
  Company Number: DE-AVENTIS-200612395DE

PATIENT
  Sex: Female

DRUGS (4)
  1. CLEXANE [Suspect]
     Indication: ANTICOAGULANT THERAPY
     Route: 058
  2. MARCUMAR [Suspect]
     Indication: ANTICOAGULANT THERAPY
     Route: 048
  3. CLINDAMYCIN HCL [Concomitant]
     Route: 048
  4. CLINDAMYCIN [Concomitant]
     Route: 042

REACTIONS (5)
  - ACTIVATED PARTIAL THROMBOPLASTIN TIME PROLONGED [None]
  - COAGULATION TEST ABNORMAL [None]
  - COAGULOPATHY [None]
  - HAEMORRHAGE [None]
  - PROTHROMBIN TIME PROLONGED [None]
